FAERS Safety Report 11755084 (Version 1)
Quarter: 2015Q4

REPORT INFORMATION
  Report Type: Spontaneous
  Country: FR (occurrence: FR)
  Receive Date: 20151119
  Receipt Date: 20151119
  Transmission Date: 20160304
  Serious: Yes (Hospitalization, Other)
  Sender: FDA-Public Use
  Company Number: FR-TEVA-610462ISR

PATIENT
  Age: 61 Year
  Sex: Female

DRUGS (6)
  1. SOFOSBUVIR [Interacting]
     Active Substance: SOFOSBUVIR
  2. DACLATASVIR. [Interacting]
     Active Substance: DACLATASVIR
  3. AMIODARONE [Suspect]
     Active Substance: AMIODARONE
  4. ATENOLOL. [Concomitant]
     Active Substance: ATENOLOL
  5. FLUINDIONE [Concomitant]
     Active Substance: FLUINDIONE
  6. ATORVASTATIN [Concomitant]
     Active Substance: ATORVASTATIN

REACTIONS (2)
  - Bradycardia [Recovered/Resolved]
  - Drug interaction [Recovered/Resolved]
